APPROVED DRUG PRODUCT: ANDRODERM
Active Ingredient: TESTOSTERONE
Strength: 5MG/24HR
Dosage Form/Route: FILM, EXTENDED RELEASE;TRANSDERMAL
Application: N020489 | Product #002
Applicant: ABBVIE INC
Approved: May 2, 1997 | RLD: No | RS: No | Type: DISCN